FAERS Safety Report 17064261 (Version 6)
Quarter: 2021Q2

REPORT INFORMATION
  Report Type: Spontaneous
  Country: US (occurrence: US)
  Receive Date: 20191122
  Receipt Date: 20210531
  Transmission Date: 20210716
  Serious: No
  Sender: FDA-Public Use
  Company Number: US-PFIZER INC-2019498099

PATIENT
  Age: 55 Year
  Sex: Female

DRUGS (4)
  1. LYRICA [Suspect]
     Active Substance: PREGABALIN
     Indication: MULTIPLE SCLEROSIS
     Dosage: 200 MG, 3X/DAY (TID)
     Route: 048
     Dates: end: 20201210
  2. NORCO [Concomitant]
     Active Substance: ACETAMINOPHEN\HYDROCODONE BITARTRATE
     Indication: PAIN
     Dosage: UNK (3?4 TABS PER DAY)
  3. LYRICA [Suspect]
     Active Substance: PREGABALIN
     Indication: PAIN IN EXTREMITY
     Dosage: 200 MG, 2X/DAY
     Route: 048
     Dates: start: 20150422
  4. LYRICA [Suspect]
     Active Substance: PREGABALIN
     Indication: LHERMITTE^S SIGN
     Dosage: 200 MG, 2X/DAY
     Route: 048

REACTIONS (7)
  - Myalgia [Unknown]
  - Intentional product use issue [Unknown]
  - Back pain [Unknown]
  - Asthenia [Unknown]
  - Headache [Unknown]
  - Fatigue [Unknown]
  - Drug ineffective [Unknown]
